FAERS Safety Report 8328724 (Version 2)
Quarter: 2013Q2

REPORT INFORMATION
  Report Type: Spontaneous
  Country: US (occurrence: None)
  Receive Date: 20111130
  Receipt Date: 20121130
  Transmission Date: 20140414
  Serious: Yes (Other)
  Sender: FDA-Public Use
  Company Number: PHEH2011US01104

PATIENT
  Age: 69 Year
  Sex: Male

DRUGS (12)
  1. TEKTURNA [Suspect]
  2. DIOVAN [Suspect]
     Indication: HYPERTENSION
     Dosage: 320 MG, QD
  3. LOPRESSOR [Suspect]
  4. ALDACTONE [Suspect]
  5. PROCARDIA [Suspect]
  6. PLAVIX [Suspect]
  7. METOPROLOL TARTRATE [Concomitant]
  8. NIFEDIPINE [Concomitant]
  9. LEVERMIR (LEVERMIR) [Concomitant]
  10. METFORMIN HYDROCHLORIDE [Concomitant]
  11. JANUVIA [Concomitant]
  12. SIMVASTATIN [Concomitant]

REACTIONS (4)
  - HYPERTENSION [None]
  - RASH [None]
  - PRURITUS [None]
  - BLOOD PRESSURE INADEQUATELY CONTROLLED [None]
